FAERS Safety Report 8392470-1 (Version None)
Quarter: 2012Q2

REPORT INFORMATION
  Report Type: 
  Country: None (occurrence: None)
  Receive Date: 20120529
  Receipt Date: 20120523
  Transmission Date: 20120825
  Serious: No
  Sender: FDA-Public Use
  Company Number: US-PFIZER INC-2012125792

PATIENT
  Sex: Female
  Weight: 63.492 kg

DRUGS (2)
  1. ADVIL [Suspect]
     Dosage: 200 MG, AS NEEDED
     Route: 048
  2. FOLIC ACID [Concomitant]
     Dosage: 1 MG, DAILY

REACTIONS (1)
  - DIZZINESS [None]
